FAERS Safety Report 10571132 (Version 2)
Quarter: 2014Q4

REPORT INFORMATION
  Report Type: Report from Study
  Country: BR (occurrence: BR)
  Receive Date: 20141107
  Receipt Date: 20141107
  Transmission Date: 20150529
  Serious: Yes (Hospitalization, Other)
  Sender: FDA-Public Use
  Company Number: BR-ABBVIE-10P-020-0674592-00

PATIENT
  Sex: Female
  Weight: 75 kg

DRUGS (3)
  1. DICLOFENAC/CODEIN [Concomitant]
     Indication: PAIN
     Dosage: 1 IN 24 HOURS
     Route: 048
  2. HUMIRA [Suspect]
     Active Substance: ADALIMUMAB
     Indication: RHEUMATOID ARTHRITIS
     Route: 058
     Dates: end: 201101
  3. OMEPRAZOLE. [Concomitant]
     Active Substance: OMEPRAZOLE
     Indication: GASTRIC DISORDER
     Route: 048

REACTIONS (10)
  - Thyroid cancer [Recovered/Resolved]
  - Tendonitis [Not Recovered/Not Resolved]
  - Depression [Recovering/Resolving]
  - Irritability [Recovered/Resolved]
  - Oropharyngeal discomfort [Recovered/Resolved]
  - Nephrolithiasis [Not Recovered/Not Resolved]
  - Aggression [Recovered/Resolved]
  - Oropharyngeal pain [Recovered/Resolved]
  - Dysphonia [Recovering/Resolving]
  - Benign neoplasm of thyroid gland [Recovered/Resolved]

NARRATIVE: CASE EVENT DATE: 2010
